FAERS Safety Report 7656585-5 (Version None)
Quarter: 2011Q3

REPORT INFORMATION
  Report Type: 
  Country: None (occurrence: None)
  Receive Date: 20110804
  Receipt Date: 20110511
  Transmission Date: 20111222
  Serious: No
  Sender: FDA-Public Use
  Company Number: US-BAUSCH-2011BL003110

PATIENT
  Age: 10 Year
  Sex: Male

DRUGS (1)
  1. OPCON-A [Suspect]
     Indication: SEASONAL ALLERGY
     Route: 047
     Dates: start: 20110501, end: 20110501

REACTIONS (6)
  - LACRIMATION INCREASED [None]
  - DRUG INEFFECTIVE [None]
  - EYE SWELLING [None]
  - EYE PRURITUS [None]
  - CONDITION AGGRAVATED [None]
  - OCULAR HYPERAEMIA [None]
